FAERS Safety Report 6540805-4 (Version None)
Quarter: 2010Q1

REPORT INFORMATION
  Report Type: 
  Country: None (occurrence: None)
  Receive Date: 20100118
  Receipt Date: 20100111
  Transmission Date: 20100710
  Serious: No
  Sender: FDA-Public Use
  Company Number: DE-JNJFOC-20100102943

PATIENT
  Sex: Male
  Weight: 50 kg

DRUGS (10)
  1. DURAGESIC-100 [Suspect]
     Indication: BONE NEOPLASM MALIGNANT
     Route: 062
     Dates: start: 20091101
  2. DEXAMETHASONE TAB [Concomitant]
     Route: 065
  3. LYRICA [Concomitant]
     Route: 065
  4. OMEPRAZOLE [Concomitant]
     Route: 065
  5. MIRTAZAPINE [Concomitant]
     Route: 065
  6. NOVALGIN [Concomitant]
     Route: 065
  7. MOVICOL [Concomitant]
     Route: 065
  8. BONEFOS [Concomitant]
     Route: 065
  9. JOHANNISKRAUT [Concomitant]
     Route: 065
  10. TAVOR [Concomitant]
     Route: 065

REACTIONS (2)
  - APPLICATION SITE HAEMATOMA [None]
  - WRONG TECHNIQUE IN DRUG USAGE PROCESS [None]
